FAERS Safety Report 4727056-0 (Version None)
Quarter: 2005Q3

REPORT INFORMATION
  Report Type: 
  Country: None (occurrence: None)
  Receive Date: 20050728
  Receipt Date: 20050718
  Transmission Date: 20060218
  Serious: Yes (Other)
  Sender: FDA-Public Use
  Company Number: 2005GB01390

PATIENT
  Age: 19 Year
  Sex: Female

DRUGS (3)
  1. BUDESONIDE [Suspect]
     Route: 048
     Dates: start: 20050313
  2. PENTASA [Suspect]
     Route: 048
     Dates: start: 20050222, end: 20050322
  3. LEVONORGESTREL AND ETHINYL ESTRADIOL [Suspect]
     Route: 048
     Dates: end: 20050320

REACTIONS (1)
  - MYOCARDITIS [None]
